FAERS Safety Report 16208289 (Version 1)
Quarter: 2019Q2

REPORT INFORMATION
  Report Type: Spontaneous
  Country: US (occurrence: US)
  Receive Date: 20190417
  Receipt Date: 20190417
  Transmission Date: 20190711
  Serious: No
  Sender: FDA-Public Use
  Company Number: US-NOVOPROD-650398

PATIENT
  Age: 71 Year
  Sex: Male

DRUGS (1)
  1. FIASP 3ML PDS290 [Suspect]
     Active Substance: INSULIN ASPART
     Indication: PRODUCT USED FOR UNKNOWN INDICATION
     Dosage: 4 UNITS IN AM 3 UNITS AT LUNCH 5 UNITS DINNER
     Route: 058

REACTIONS (2)
  - Blood glucose increased [Unknown]
  - Device defective [Unknown]
